FAERS Safety Report 16356836 (Version 1)
Quarter: 2019Q2

REPORT INFORMATION
  Report Type: Other
  Country: US (occurrence: US)
  Receive Date: 20190527
  Receipt Date: 20190527
  Transmission Date: 20190711
  Serious: Yes (Other)
  Sender: FDA-Public Use
  Company Number: US-BIOVITRUM-2019US1251

PATIENT
  Sex: Female

DRUGS (1)
  1. KINERET [Suspect]
     Active Substance: ANAKINRA
     Indication: RHEUMATIC HEART DISEASE
     Route: 058

REACTIONS (3)
  - Blood glucose increased [Unknown]
  - Blood potassium decreased [Unknown]
  - Off label use [Unknown]
